FAERS Safety Report 11791524 (Version 6)
Quarter: 2016Q2

REPORT INFORMATION
  Report Type: Spontaneous
  Country: JP (occurrence: JP)
  Receive Date: 20151201
  Receipt Date: 20160603
  Transmission Date: 20160815
  Serious: Yes (Hospitalization, Other)
  Sender: FDA-Public Use
  Company Number: JP-BAUSCH-BL-2015-028700

PATIENT
  Age: 57 Year
  Sex: Female

DRUGS (57)
  1. FLUOROURACIL. [Suspect]
     Active Substance: FLUOROURACIL
     Route: 040
     Dates: start: 20110729, end: 20110730
  2. FLUOROURACIL. [Suspect]
     Active Substance: FLUOROURACIL
     Route: 041
     Dates: start: 20110912, end: 20110913
  3. FLUOROURACIL. [Suspect]
     Active Substance: FLUOROURACIL
     Route: 041
     Dates: start: 20111031, end: 20140123
  4. ELPLAT [Suspect]
     Active Substance: OXALIPLATIN
     Route: 041
     Dates: start: 20110627, end: 20110627
  5. ELPLAT [Suspect]
     Active Substance: OXALIPLATIN
     Route: 041
     Dates: start: 20110928, end: 20110928
  6. CALCIUM LEVOFOLINATE [Suspect]
     Active Substance: LEVOLEUCOVORIN CALCIUM
     Route: 041
     Dates: start: 20110627, end: 20110628
  7. CALCIUM LEVOFOLINATE [Suspect]
     Active Substance: LEVOLEUCOVORIN CALCIUM
     Route: 041
     Dates: start: 20110829, end: 20110830
  8. CALCIUM LEVOFOLINATE [Suspect]
     Active Substance: LEVOLEUCOVORIN CALCIUM
     Route: 041
     Dates: start: 20110928, end: 20110929
  9. AVASTIN [Suspect]
     Active Substance: BEVACIZUMAB
     Route: 041
     Dates: start: 20110912, end: 20110912
  10. AVASTIN [Suspect]
     Active Substance: BEVACIZUMAB
     Route: 041
     Dates: start: 20111014, end: 20111014
  11. FLUOROURACIL. [Suspect]
     Active Substance: FLUOROURACIL
     Route: 041
     Dates: start: 20110609, end: 20110610
  12. ELPLAT [Suspect]
     Active Substance: OXALIPLATIN
     Route: 041
     Dates: start: 20110729, end: 20110729
  13. CALCIUM LEVOFOLINATE [Suspect]
     Active Substance: LEVOLEUCOVORIN CALCIUM
     Route: 041
     Dates: start: 20111014, end: 20111015
  14. AVASTIN [Suspect]
     Active Substance: BEVACIZUMAB
     Route: 041
     Dates: start: 20111031, end: 20140123
  15. FLUOROURACIL. [Suspect]
     Active Substance: FLUOROURACIL
     Route: 040
     Dates: start: 20110928, end: 20110929
  16. ELPLAT [Suspect]
     Active Substance: OXALIPLATIN
     Route: 041
     Dates: start: 20110829, end: 20110829
  17. ELPLAT [Suspect]
     Active Substance: OXALIPLATIN
     Route: 041
     Dates: start: 20111014, end: 20111014
  18. ELPLAT [Suspect]
     Active Substance: OXALIPLATIN
     Route: 041
     Dates: start: 20140212, end: 20140319
  19. AVASTIN [Suspect]
     Active Substance: BEVACIZUMAB
     Route: 041
     Dates: start: 20110815, end: 20110815
  20. FLUOROURACIL. [Suspect]
     Active Substance: FLUOROURACIL
     Indication: COLON CANCER STAGE IV
     Route: 040
     Dates: start: 20110609, end: 20110610
  21. FLUOROURACIL. [Suspect]
     Active Substance: FLUOROURACIL
     Route: 041
     Dates: start: 20110729, end: 20110730
  22. FLUOROURACIL. [Suspect]
     Active Substance: FLUOROURACIL
     Route: 041
     Dates: start: 20110815, end: 20110816
  23. FLUOROURACIL. [Suspect]
     Active Substance: FLUOROURACIL
     Route: 041
     Dates: start: 20110829, end: 20110830
  24. FLUOROURACIL. [Suspect]
     Active Substance: FLUOROURACIL
     Route: 040
     Dates: start: 20140212, end: 20140319
  25. ELPLAT [Suspect]
     Active Substance: OXALIPLATIN
     Indication: COLON CANCER STAGE IV
     Route: 041
     Dates: start: 20110609, end: 20110609
  26. ELPLAT [Suspect]
     Active Substance: OXALIPLATIN
     Route: 041
     Dates: start: 20110711, end: 20110711
  27. CALCIUM LEVOFOLINATE [Suspect]
     Active Substance: LEVOLEUCOVORIN CALCIUM
     Indication: COLON CANCER STAGE IV
     Route: 041
     Dates: start: 20110609, end: 20110610
  28. CALCIUM LEVOFOLINATE [Suspect]
     Active Substance: LEVOLEUCOVORIN CALCIUM
     Route: 041
     Dates: start: 20111031, end: 20140123
  29. CALCIUM LEVOFOLINATE [Suspect]
     Active Substance: LEVOLEUCOVORIN CALCIUM
     Route: 041
     Dates: start: 20140212, end: 20140319
  30. AVASTIN [Suspect]
     Active Substance: BEVACIZUMAB
     Indication: COLON CANCER STAGE IV
     Route: 041
     Dates: start: 20110609, end: 20110609
  31. AVASTIN [Suspect]
     Active Substance: BEVACIZUMAB
     Route: 041
     Dates: start: 20110627, end: 20110627
  32. FLUOROURACIL. [Suspect]
     Active Substance: FLUOROURACIL
     Route: 041
     Dates: start: 20110711, end: 20110712
  33. FLUOROURACIL. [Suspect]
     Active Substance: FLUOROURACIL
     Route: 041
     Dates: start: 20140212, end: 20140319
  34. ELPLAT [Suspect]
     Active Substance: OXALIPLATIN
     Route: 041
     Dates: start: 20111031, end: 20140123
  35. CALCIUM LEVOFOLINATE [Suspect]
     Active Substance: LEVOLEUCOVORIN CALCIUM
     Route: 041
     Dates: start: 20110912, end: 20110913
  36. FLUOROURACIL. [Suspect]
     Active Substance: FLUOROURACIL
     Route: 040
     Dates: start: 20110627, end: 20110628
  37. FLUOROURACIL. [Suspect]
     Active Substance: FLUOROURACIL
     Route: 040
     Dates: start: 20110815, end: 20110816
  38. FLUOROURACIL. [Suspect]
     Active Substance: FLUOROURACIL
     Route: 040
     Dates: start: 20111014, end: 20111015
  39. ELPLAT [Suspect]
     Active Substance: OXALIPLATIN
     Route: 041
     Dates: start: 20110711, end: 20110711
  40. ELPLAT [Suspect]
     Active Substance: OXALIPLATIN
     Route: 041
     Dates: start: 20110815, end: 20110815
  41. ELPLAT [Suspect]
     Active Substance: OXALIPLATIN
     Route: 041
     Dates: start: 20110912, end: 20110912
  42. CALCIUM LEVOFOLINATE [Suspect]
     Active Substance: LEVOLEUCOVORIN CALCIUM
     Route: 041
     Dates: start: 20110729, end: 20110730
  43. AVASTIN [Suspect]
     Active Substance: BEVACIZUMAB
     Route: 041
     Dates: start: 20110711, end: 20110711
  44. AVASTIN [Suspect]
     Active Substance: BEVACIZUMAB
     Route: 041
     Dates: start: 20110729, end: 20110729
  45. AVASTIN [Suspect]
     Active Substance: BEVACIZUMAB
     Route: 041
     Dates: start: 20140212, end: 20140319
  46. FLUOROURACIL. [Suspect]
     Active Substance: FLUOROURACIL
     Route: 040
     Dates: start: 20110711, end: 20110712
  47. FLUOROURACIL. [Suspect]
     Active Substance: FLUOROURACIL
     Route: 040
     Dates: start: 20111031, end: 20140123
  48. AVASTIN [Suspect]
     Active Substance: BEVACIZUMAB
     Route: 041
     Dates: start: 20110829, end: 20110829
  49. FLUOROURACIL. [Suspect]
     Active Substance: FLUOROURACIL
     Route: 041
     Dates: start: 20110627, end: 20110628
  50. FLUOROURACIL. [Suspect]
     Active Substance: FLUOROURACIL
     Route: 040
     Dates: start: 20110829, end: 20110830
  51. FLUOROURACIL. [Suspect]
     Active Substance: FLUOROURACIL
     Route: 040
     Dates: start: 20110912, end: 20110913
  52. FLUOROURACIL. [Suspect]
     Active Substance: FLUOROURACIL
     Route: 041
     Dates: start: 20110928, end: 20110929
  53. FLUOROURACIL. [Suspect]
     Active Substance: FLUOROURACIL
     Route: 041
     Dates: start: 20111014, end: 20111015
  54. CALCIUM LEVOFOLINATE [Suspect]
     Active Substance: LEVOLEUCOVORIN CALCIUM
     Route: 041
     Dates: start: 20110711, end: 20110712
  55. CALCIUM LEVOFOLINATE [Suspect]
     Active Substance: LEVOLEUCOVORIN CALCIUM
     Route: 041
     Dates: start: 20110815, end: 20110816
  56. AVASTIN [Suspect]
     Active Substance: BEVACIZUMAB
     Route: 041
     Dates: start: 20110928, end: 20110928
  57. NORVASC [Concomitant]
     Active Substance: AMLODIPINE BESYLATE
     Indication: PRODUCT USED FOR UNKNOWN INDICATION
     Dates: start: 20110709

REACTIONS (7)
  - Large intestinal stenosis [Recovering/Resolving]
  - Rectal obstruction [Recovering/Resolving]
  - Large intestinal obstruction [Recovered/Resolved]
  - White blood cell count decreased [Unknown]
  - Hypertension [Unknown]
  - Neutrophil count decreased [Recovered/Resolved]
  - Impaired healing [Unknown]

NARRATIVE: CASE EVENT DATE: 20110623
